FAERS Safety Report 5598460-6 (Version None)
Quarter: 2007Q4

REPORT INFORMATION
  Report Type: 
  Country: None (occurrence: None)
  Receive Date: 20071226
  Receipt Date: 20061221
  Transmission Date: 20080405
  Serious: Yes (Other)
  Sender: FDA-Public Use
  Company Number: 2006EN000207

PATIENT
  Age: 70 Year
  Sex: Male

DRUGS (1)
  1. ABELCET [Suspect]
     Indication: UPPER RESPIRATORY FUNGAL INFECTION
     Dosage: ;IV
     Route: 042
     Dates: start: 20061220, end: 20061220

REACTIONS (1)
  - CONVULSION [None]
